FAERS Safety Report 8815820 (Version 1)
Quarter: 2012Q4

REPORT INFORMATION
  Report Type: 
  Country: GB (occurrence: GB)
  Receive Date: 20120928
  Receipt Date: 20120928
  Transmission Date: 20130627
  Serious: Yes (Other)
  Sender: FDA-Public Use
  Company Number: GB-B.I. PHARMACEUTICALS,INC./RIDGEFIELD-2012-UK-01239UK

PATIENT
  Sex: Female

DRUGS (1)
  1. DABIGATRAN [Suspect]
     Indication: CEREBROVASCULAR ACCIDENT PROPHYLAXIS
     Route: 048
     Dates: start: 201208

REACTIONS (7)
  - Malaise [Unknown]
  - Gastric haemorrhage [Unknown]
  - Incontinence [Unknown]
  - Vomiting [Unknown]
  - Diarrhoea [Unknown]
  - Dyspepsia [Unknown]
  - Thirst [Unknown]
